FAERS Safety Report 9818893 (Version 1)
Quarter: 2013Q4

REPORT INFORMATION
  Report Type: Spontaneous
  Country: US (occurrence: None)
  Receive Date: 20131223
  Receipt Date: 20131223
  Transmission Date: 20140711
  Serious: No
  Sender: FDA-Public Use
  Company Number: 220502

PATIENT
  Sex: Male

DRUGS (1)
  1. PICATO (0.05 %, GEL) [Suspect]
     Indication: ACTINIC KERATOSIS
     Route: 061
     Dates: start: 20130208, end: 20130208

REACTIONS (5)
  - Skin exfoliation [None]
  - Application site dryness [None]
  - Application site exfoliation [None]
  - Pruritus [None]
  - Drug administration error [None]
